FAERS Safety Report 23948090 (Version 1)
Quarter: 2024Q2

REPORT INFORMATION
  Report Type: Spontaneous
  Country: TR (occurrence: TR)
  Receive Date: 20240607
  Receipt Date: 20240607
  Transmission Date: 20240716
  Serious: Yes (Hospitalization, Other)
  Sender: FDA-Public Use
  Company Number: None

PATIENT
  Age: 13 Year
  Sex: Female

DRUGS (7)
  1. RISPERIDONE [Interacting]
     Active Substance: RISPERIDONE
     Indication: Behaviour disorder
     Dosage: 0.5 MG, ONCE PER DAY
     Route: 065
  2. RISPERIDONE [Interacting]
     Active Substance: RISPERIDONE
     Dosage: 2 MG, ONCE PER DAY
     Route: 065
  3. ARIPIPRAZOLE [Interacting]
     Active Substance: ARIPIPRAZOLE
     Indication: Autism spectrum disorder
     Dosage: 2 MG, ONCE PER DAY
     Route: 065
  4. ARIPIPRAZOLE [Interacting]
     Active Substance: ARIPIPRAZOLE
     Dosage: 4 MG, ONCE PER DAY
     Route: 065
  5. METHYLPHENIDATE [Concomitant]
     Active Substance: METHYLPHENIDATE
     Indication: Impulsive behaviour
     Dosage: LONG-RELEASE
     Route: 065
  6. FLUOXETINE [Interacting]
     Active Substance: FLUOXETINE HYDROCHLORIDE
     Indication: Autism spectrum disorder
     Dosage: 30 MG, ONCE PER DAY
  7. FLUOXETINE [Interacting]
     Active Substance: FLUOXETINE HYDROCHLORIDE

REACTIONS (4)
  - Drug interaction [Recovering/Resolving]
  - Drug interaction [Recovering/Resolving]
  - Tardive dyskinesia [Recovering/Resolving]
  - Intentional product misuse [Recovering/Resolving]
